FAERS Safety Report 21192204 (Version 1)
Quarter: 2022Q3

REPORT INFORMATION
  Report Type: Spontaneous
  Country: US (occurrence: MX)
  Receive Date: 20220809
  Receipt Date: 20220809
  Transmission Date: 20221027
  Serious: Yes (Death, Other)
  Sender: FDA-Public Use
  Company Number: US-009507513-2208MEX002047

PATIENT
  Age: 56 Year
  Sex: Male

DRUGS (4)
  1. IMIPENEM AND CILASTATIN [Suspect]
     Active Substance: CILASTATIN SODIUM\IMIPENEM
     Indication: Pneumonia klebsiella
  2. IMIPENEM AND CILASTATIN [Suspect]
     Active Substance: CILASTATIN SODIUM\IMIPENEM
     Indication: Pneumonia staphylococcal
  3. VANCOMYCIN [Concomitant]
     Active Substance: VANCOMYCIN
  4. AMIKACIN [Concomitant]
     Active Substance: AMIKACIN

REACTIONS (2)
  - Onychomycosis [Fatal]
  - Systemic candida [Fatal]
